FAERS Safety Report 16571271 (Version 1)
Quarter: 2019Q3

REPORT INFORMATION
  Report Type: Spontaneous
  Country: US (occurrence: US)
  Receive Date: 20190715
  Receipt Date: 20190715
  Transmission Date: 20191004
  Serious: No
  Sender: FDA-Public Use
  Company Number: US-TESARO-2019-TSO01658-US

PATIENT
  Age: 72 Year

DRUGS (2)
  1. ZEJULA [Suspect]
     Active Substance: NIRAPARIB
     Indication: PRODUCT USED FOR UNKNOWN INDICATION
     Dosage: 300 MG, UNK
  2. ZEJULA [Suspect]
     Active Substance: NIRAPARIB
     Dosage: UNK, UNK (DOSE REDUCED)

REACTIONS (1)
  - Platelet count decreased [Recovered/Resolved]
